FAERS Safety Report 14684299 (Version 3)
Quarter: 2020Q1

REPORT INFORMATION
  Report Type: Spontaneous
  Country: CA (occurrence: CA)
  Receive Date: 20180327
  Receipt Date: 20200312
  Transmission Date: 20200409
  Serious: Yes (Life-Threatening, Hospitalization, Other)
  Sender: FDA-Public Use
  Company Number: CA-BRISTOL-MYERS SQUIBB COMPANY-BMS-2018-024429

PATIENT
  Age: 50 Year
  Sex: Female

DRUGS (6)
  1. ORENCIA [Suspect]
     Active Substance: ABATACEPT
     Indication: RHEUMATOID ARTHRITIS
     Dosage: UNK, QWK
     Route: 065
     Dates: start: 201707, end: 20180220
  2. FOLIC ACID. [Concomitant]
     Active Substance: FOLIC ACID
     Indication: PRODUCT USED FOR UNKNOWN INDICATION
     Dosage: UNK, QWK
     Route: 065
  3. METHOTREXATE. [Suspect]
     Active Substance: METHOTREXATE
     Indication: PRODUCT USED FOR UNKNOWN INDICATION
     Route: 065
  4. DILAUDID [Concomitant]
     Active Substance: HYDROMORPHONE HYDROCHLORIDE
     Indication: PAIN
     Dosage: 4 MG, BID
     Route: 065
  5. D-TABS [Concomitant]
     Active Substance: CHOLECALCIFEROL
     Indication: PRODUCT USED FOR UNKNOWN INDICATION
     Dosage: 1 TAB, QWK
     Route: 065
  6. VITAMIN D3 [Concomitant]
     Active Substance: CHOLECALCIFEROL
     Indication: PRODUCT USED FOR UNKNOWN INDICATION
     Dosage: 1 DOSAGE FORM, QWK
     Route: 065

REACTIONS (17)
  - Insomnia [Unknown]
  - Skin laceration [Unknown]
  - Lip haemorrhage [Unknown]
  - Scratch [Unknown]
  - Pain [Unknown]
  - Swollen tongue [Unknown]
  - Nasal discomfort [Unknown]
  - Thermal burn [Unknown]
  - Toxicity to various agents [Unknown]
  - Nausea [Unknown]
  - Oral pain [Unknown]
  - Haemorrhage [Unknown]
  - Alopecia [Unknown]
  - Diarrhoea [Unknown]
  - Neutropenia [Unknown]
  - Platelet count decreased [Unknown]
  - Viral infection [Unknown]

NARRATIVE: CASE EVENT DATE: 201802
